FAERS Safety Report 14590863 (Version 2)
Quarter: 2018Q1

REPORT INFORMATION
  Report Type: Spontaneous
  Country: JP (occurrence: JP)
  Receive Date: 20180302
  Receipt Date: 20180313
  Transmission Date: 20180509
  Serious: Yes (Other)
  Sender: FDA-Public Use
  Company Number: JP-MYLANLABS-2018M1014470

PATIENT
  Age: 32 Year
  Sex: Female

DRUGS (5)
  1. PREDNISOLONE. [Suspect]
     Active Substance: PREDNISOLONE
     Dosage: 30MG PER DAY
     Route: 048
  2. OXYTOCIN. [Concomitant]
     Active Substance: OXYTOCIN
     Indication: LABOUR INDUCTION
     Dosage: AT THE MAXIMAL DOSAGE (20 MU/MIN) FOR 9 HOURS
     Route: 050
  3. PREDNISOLONE. [Suspect]
     Active Substance: PREDNISOLONE
     Indication: SYSTEMIC LUPUS ERYTHEMATOSUS
     Dosage: 12.5MG DAILY
     Route: 048
  4. ASPIRIN                            /00002701/ [Concomitant]
     Active Substance: ASPIRIN
     Indication: PRODUCT USED FOR UNKNOWN INDICATION
     Dosage: 100MG
     Route: 065
  5. PREDNISOLONE. [Suspect]
     Active Substance: PREDNISOLONE
     Dosage: 40MG PER DAY
     Route: 048

REACTIONS (5)
  - Exposure during pregnancy [Recovered/Resolved]
  - Uterine disorder [Unknown]
  - Uterine rupture [Unknown]
  - Placenta accreta [Unknown]
  - Uterine atony [Unknown]
